FAERS Safety Report 13419065 (Version 4)
Quarter: 2017Q4

REPORT INFORMATION
  Report Type: Spontaneous
  Country: US (occurrence: US)
  Receive Date: 20170407
  Receipt Date: 20171023
  Transmission Date: 20180320
  Serious: No
  Sender: FDA-Public Use
  Company Number: US-TEVA-753570ACC

PATIENT
  Sex: Female

DRUGS (17)
  1. ZOCOR [Concomitant]
     Active Substance: SIMVASTATIN
  2. TOPROL XL [Concomitant]
     Active Substance: METOPROLOL SUCCINATE
  3. SIMVASTATIN. [Concomitant]
     Active Substance: SIMVASTATIN
  4. ACETYLSALICYLIC ACID [Concomitant]
     Active Substance: ASPIRIN
  5. CELEXA [Concomitant]
     Active Substance: CITALOPRAM HYDROBROMIDE
  6. CITALOPRAM [Concomitant]
     Active Substance: CITALOPRAM HYDROBROMIDE
  7. METOPROLOL ER [Concomitant]
     Active Substance: METOPROLOL SUCCINATE
  8. ASPIRIN. [Concomitant]
     Active Substance: ASPIRIN
  9. COPAXONE [Suspect]
     Active Substance: GLATIRAMER ACETATE
     Indication: MULTIPLE SCLEROSIS
     Dosage: PRE FILLED SYRINGE
     Route: 058
     Dates: start: 20161230
  10. NEURONTIN [Concomitant]
     Active Substance: GABAPENTIN
  11. CYANOCOBALAMIN. [Concomitant]
     Active Substance: CYANOCOBALAMIN
  12. OMEPRAZOLE. [Concomitant]
     Active Substance: OMEPRAZOLE
  13. VITAMIN B12 [Concomitant]
     Active Substance: CYANOCOBALAMIN
  14. CELEBREX [Concomitant]
     Active Substance: CELECOXIB
  15. GABAPENTIN. [Concomitant]
     Active Substance: GABAPENTIN
  16. SYNTHROID [Concomitant]
     Active Substance: LEVOTHYROXINE SODIUM
  17. ASA [Concomitant]
     Active Substance: ASPIRIN

REACTIONS (4)
  - Irritable bowel syndrome [Not Recovered/Not Resolved]
  - Muscle spasms [Not Recovered/Not Resolved]
  - Diarrhoea [Recovered/Resolved]
  - Balance disorder [Not Recovered/Not Resolved]
